FAERS Safety Report 8449215-6 (Version None)
Quarter: 2012Q2

REPORT INFORMATION
  Report Type: 
  Country: None (occurrence: None)
  Receive Date: 20120619
  Receipt Date: 20120604
  Transmission Date: 20120825
  Serious: Yes (Hospitalization)
  Sender: FDA-Public Use
  Company Number: TR-WATSON-2012-10067

PATIENT
  Age: 5 Year
  Sex: Female

DRUGS (2)
  1. ELSPAR [Suspect]
     Indication: ACUTE LYMPHOCYTIC LEUKAEMIA
     Dosage: 5000 IU, 8 DOSES BETWEEN 12TH AND 33RD DAYS
     Route: 065
  2. PREDNISONE TAB [Suspect]
     Indication: ACUTE LYMPHOCYTIC LEUKAEMIA
     Dosage: 60 MG, DAILY
     Route: 065

REACTIONS (3)
  - HYPERLIPIDAEMIA [None]
  - FULL BLOOD COUNT ABNORMAL [None]
  - PSEUDOHYPONATRAEMIA [None]
